FAERS Safety Report 15296526 (Version 1)
Quarter: 2020Q3

REPORT INFORMATION
  Report Type: Report from Study
  Country: KR (occurrence: KR)
  Receive Date: 20180820
  Receipt Date: 20180820
  Transmission Date: 20201105
  Serious: Yes (Hospitalization)
  Sender: FDA-Public Use
  Company Number: KR-JNJFOC-20160809557

PATIENT
  Age: 36 Year
  Sex: Female
  Weight: 45.5 kg

DRUGS (8)
  1. USTEKINUMAB [Suspect]
     Active Substance: USTEKINUMAB
     Indication: COLITIS ULCERATIVE
     Route: 042
     Dates: start: 20160629, end: 20160629
  2. COLOSTRUM [Concomitant]
     Active Substance: DIETARY SUPPLEMENT
     Route: 048
     Dates: start: 2011
  3. USTEKINUMAB [Suspect]
     Active Substance: USTEKINUMAB
     Route: 042
  4. PENTASA [Concomitant]
     Active Substance: MESALAMINE
     Indication: COLITIS ULCERATIVE
     Route: 048
     Dates: start: 20160216, end: 20160616
  5. PENTASA [Concomitant]
     Active Substance: MESALAMINE
     Indication: COLITIS ULCERATIVE
     Route: 048
     Dates: start: 20160617
  6. FEROBA U [Concomitant]
     Indication: ANAEMIA PROPHYLAXIS
     Route: 048
     Dates: start: 20160216
  7. IRCODON [Concomitant]
     Active Substance: OXYCODONE HYDROCHLORIDE
     Indication: PAIN
     Route: 048
     Dates: start: 20160216
  8. OXYCONTIN [Concomitant]
     Active Substance: OXYCODONE HYDROCHLORIDE
     Indication: PAIN
     Route: 048
     Dates: start: 20160524

REACTIONS (1)
  - Gastroenteritis [Recovered/Resolved]

NARRATIVE: CASE EVENT DATE: 20160808
